FAERS Safety Report 15296532 (Version 1)
Quarter: 2018Q3

REPORT INFORMATION
  Report Type: Spontaneous
  Country: FR (occurrence: FR)
  Receive Date: 20180820
  Receipt Date: 20180820
  Transmission Date: 20181010
  Serious: Yes (Hospitalization)
  Sender: FDA-Public Use
  Company Number: FR-PFIZER INC-2018327005

PATIENT
  Age: 57 Year
  Sex: Male

DRUGS (5)
  1. INEXIUM /01479302/ [Concomitant]
     Active Substance: ESOMEPRAZOLE MAGNESIUM
     Indication: ABDOMINAL PAIN UPPER
     Dosage: 40 MG, 1X/DAY
     Route: 042
     Dates: start: 20180621, end: 20180628
  2. ERYTHROCINE /00020905/ [Suspect]
     Active Substance: ERYTHROMYCIN LACTOBIONATE
     Indication: INTERSTITIAL LUNG DISEASE
     Dosage: 3 G, UNK
     Route: 042
     Dates: start: 20180621, end: 20180628
  3. TIENAM [Concomitant]
     Active Substance: CILASTATIN SODIUM\IMIPENEM
     Indication: INTERSTITIAL LUNG DISEASE
     Dosage: 2 G, 1X/DAY
     Route: 042
     Dates: start: 20180625, end: 20180703
  4. ZYVOXID [Suspect]
     Active Substance: LINEZOLID
     Indication: INTERSTITIAL LUNG DISEASE
     Dosage: 1.2 G, 1X/DAY
     Route: 042
     Dates: start: 20180621, end: 20180628
  5. TAZOCILLINE [Concomitant]
     Active Substance: PIPERACILLIN SODIUM\TAZOBACTAM SODIUM
     Indication: INTERSTITIAL LUNG DISEASE
     Dosage: 16 G, 1X/DAY
     Route: 042
     Dates: start: 20180621, end: 20180625

REACTIONS (6)
  - Cholestasis [Recovering/Resolving]
  - Blood bilirubin increased [Recovering/Resolving]
  - Aspartate aminotransferase increased [Recovering/Resolving]
  - Jaundice [Recovering/Resolving]
  - Blood alkaline phosphatase increased [Recovering/Resolving]
  - Gamma-glutamyltransferase increased [Recovering/Resolving]

NARRATIVE: CASE EVENT DATE: 20180627
